APPROVED DRUG PRODUCT: NAPROXEN SODIUM
Active Ingredient: NAPROXEN SODIUM
Strength: EQ 200MG BASE
Dosage Form/Route: CAPSULE;ORAL
Application: A208363 | Product #001
Applicant: PURACAP PHARMACEUTICAL LLC
Approved: Mar 15, 2018 | RLD: No | RS: No | Type: OTC